FAERS Safety Report 8897108 (Version 1)
Quarter: 2012Q4

REPORT INFORMATION
  Report Type: 
  Country: US (occurrence: US)
  Receive Date: 20121108
  Receipt Date: 20121108
  Transmission Date: 20130627
  Serious: No
  Sender: FDA-Public Use
  Company Number: US-AMGEN-USASP2012029449

PATIENT
  Age: 67 Year
  Sex: Male
  Weight: 79.37 kg

DRUGS (8)
  1. ENBREL [Suspect]
     Indication: PRODUCT USED FOR UNKNOWN INDICATION
     Dosage: 50 mg, qwk
     Route: 058
  2. CENTRUM                            /00554501/ [Concomitant]
     Dosage: UNK
  3. PREDNISONE [Concomitant]
     Dosage: 1 mg, UNK
  4. ADVAIR [Concomitant]
     Dosage: UNK
  5. SPIRIVA HANDIHALER [Concomitant]
     Dosage: UNK
  6. SULFASALAZIN [Concomitant]
     Dosage: 500 mg, UNK
  7. FISH OIL [Concomitant]
     Dosage: UNK
  8. CALCIUM +D                         /00188401/ [Concomitant]
     Dosage: UNK

REACTIONS (1)
  - Dizziness [Recovering/Resolving]
